FAERS Safety Report 16290067 (Version 1)
Quarter: 2019Q2

REPORT INFORMATION
  Report Type: Spontaneous
  Country: JP (occurrence: JP)
  Receive Date: 20190509
  Receipt Date: 20190509
  Transmission Date: 20190711
  Serious: Yes (Other)
  Sender: FDA-Public Use
  Company Number: JP-TEVA-2019-JP-1046976

PATIENT
  Age: 7 Decade
  Sex: Female

DRUGS (6)
  1. AZOSEMIDE [Concomitant]
     Active Substance: AZOSEMIDE
     Route: 065
  2. WARFARIN [Suspect]
     Active Substance: WARFARIN
     Indication: ANTICOAGULANT THERAPY
     Dosage: INITIAL DOSAGE NOT STATED
     Route: 048
  3. CARVEDILOL. [Concomitant]
     Active Substance: CARVEDILOL
     Route: 065
  4. VERAPAMIL HYDROCHLORIDE. [Concomitant]
     Active Substance: VERAPAMIL HYDROCHLORIDE
     Route: 065
  5. VONOPRAZAN FUMARATE [Concomitant]
     Active Substance: VONOPRAZAN FUMURATE
     Route: 065
  6. BALOXAVIR MARBOXIL. [Interacting]
     Active Substance: BALOXAVIR MARBOXIL
     Indication: INFLUENZA
     Dosage: ONCE
     Route: 065

REACTIONS (3)
  - Drug interaction [Recovered/Resolved]
  - Contusion [Unknown]
  - International normalised ratio increased [Recovered/Resolved]
